FAERS Safety Report 8225762-7 (Version None)
Quarter: 2012Q1

REPORT INFORMATION
  Report Type: 
  Country: None (occurrence: None)
  Receive Date: 20120321
  Receipt Date: 20120313
  Transmission Date: 20120608
  Serious: Yes (Other)
  Sender: FDA-Public Use
  Company Number: JP-ALLERGAN-1203796US

PATIENT
  Age: 31 Year
  Sex: Female

DRUGS (4)
  1. ZONISAMIDE [Concomitant]
     Dosage: UNK
     Route: 048
  2. DIAZEPAM [Concomitant]
     Route: 048
  3. BOTOX [Suspect]
     Indication: MUSCLE SPASMS
     Dosage: 240 UNITS, QD
     Route: 030
     Dates: start: 20120126
  4. LIORESAL [Concomitant]
     Route: 048

REACTIONS (3)
  - LOSS OF CONSCIOUSNESS [None]
  - FEELING ABNORMAL [None]
  - EPILEPSY [None]
